FAERS Safety Report 16787222 (Version 2)
Quarter: 2019Q4

REPORT INFORMATION
  Report Type: Spontaneous
  Country: US (occurrence: US)
  Receive Date: 20190909
  Receipt Date: 20191121
  Transmission Date: 20200122
  Serious: Yes (Other)
  Sender: FDA-Public Use
  Company Number: US-SA-2019SA248088

PATIENT
  Age: 29 Year
  Sex: Female

DRUGS (7)
  1. TAXOTERE [Suspect]
     Active Substance: DOCETAXEL
     Dosage: 3.17.10 115MG, 4.7.10 115MG, 4.28.10 115MG,5.19.10 115MG, 6.9.10 120MG,6.30.10 120 MG, Q3W
     Route: 042
     Dates: start: 20100630, end: 20100630
  2. NEOSAR [Concomitant]
     Active Substance: CYCLOPHOSPHAMIDE
     Indication: BREAST CANCER FEMALE
     Dosage: UNK
  3. ADRIAMYCIN [Concomitant]
     Active Substance: DOXORUBICIN HYDROCHLORIDE
     Dosage: UNK
     Dates: start: 20100630, end: 20100630
  4. ADRIAMYCIN [Concomitant]
     Active Substance: DOXORUBICIN HYDROCHLORIDE
     Indication: BREAST CANCER FEMALE
     Dosage: UNK
     Dates: start: 20100317, end: 20100317
  5. TAXOTERE [Suspect]
     Active Substance: DOCETAXEL
     Indication: BREAST CANCER FEMALE
     Dosage: 3.17.10 115MG, 4.7.10 115MG, 4.28.10 115MG,5.19.10 115MG, 6.9.10 120MG,6.30.10 120 MG, Q3W
     Route: 042
     Dates: start: 20100317, end: 20100317
  6. CYTOXAN [Concomitant]
     Active Substance: CYCLOPHOSPHAMIDE
     Indication: BREAST CANCER FEMALE
     Dosage: UNK
     Dates: start: 20100317, end: 20100317
  7. CYTOXAN [Concomitant]
     Active Substance: CYCLOPHOSPHAMIDE
     Dosage: UNK
     Dates: start: 20100630, end: 20100630

REACTIONS (1)
  - Alopecia [Recovering/Resolving]
